FAERS Safety Report 13399868 (Version 1)
Quarter: 2017Q2

REPORT INFORMATION
  Report Type: Spontaneous
  Country: US (occurrence: US)
  Receive Date: 20170404
  Receipt Date: 20170404
  Transmission Date: 20170830
  Serious: Yes (Disabling)
  Sender: FDA-Public Use
  Company Number: None

PATIENT
  Age: 40 Year
  Sex: Female
  Weight: 99 kg

DRUGS (9)
  1. PRALUENT [Suspect]
     Active Substance: ALIROCUMAB
     Indication: BLOOD CHOLESTEROL INCREASED
     Route: 058
     Dates: start: 20150815
  2. TOPIRAMATE. [Concomitant]
     Active Substance: TOPIRAMATE
  3. PRALUENT [Concomitant]
     Active Substance: ALIROCUMAB
  4. BABY ASPIRIN [Concomitant]
     Active Substance: ASPIRIN
  5. VASCEPA [Concomitant]
     Active Substance: ICOSAPENT ETHYL
  6. RIZATRIPTAN. [Concomitant]
     Active Substance: RIZATRIPTAN
  7. FIBER [Concomitant]
     Active Substance: PSYLLIUM HUSK
  8. MOBIC [Concomitant]
     Active Substance: MELOXICAM
  9. BIOTIN [Concomitant]
     Active Substance: BIOTIN

REACTIONS (1)
  - Muscle spasms [None]

NARRATIVE: CASE EVENT DATE: 20170404
